FAERS Safety Report 4914200-5 (Version None)
Quarter: 2006Q1

REPORT INFORMATION
  Report Type: 
  Country: None (occurrence: None)
  Receive Date: 20060213
  Receipt Date: 20060125
  Transmission Date: 20060701
  Serious: Yes (Death)
  Sender: FDA-Public Use
  Company Number: 221963

PATIENT
  Age: 53 Year
  Sex: Female

DRUGS (4)
  1. AVASTIN [Suspect]
     Indication: COLON CANCER
     Dosage: 240 MG, INTRAVENOUS
     Route: 042
     Dates: start: 20051110, end: 20051110
  2. CAMPTOSAR [Suspect]
     Indication: COLON CANCER
     Dosage: 180 MG/M2, INTRAVENOUS
     Route: 042
     Dates: start: 20051110, end: 20051110
  3. FLUOROURACIL [Suspect]
     Indication: COLON CANCER
     Dosage: 2400 MG/M2, INTRAVENOUS
     Route: 042
     Dates: start: 20051110, end: 20051110
  4. FOLIC ACID [Concomitant]

REACTIONS (13)
  - ASTHENIA [None]
  - DISSEMINATED INTRAVASCULAR COAGULATION [None]
  - FALL [None]
  - GASTROINTESTINAL DISORDER [None]
  - HAEMOGLOBIN DECREASED [None]
  - HYPOTENSION [None]
  - MUCOUS MEMBRANE DISORDER [None]
  - PALLOR [None]
  - PLATELET COUNT DECREASED [None]
  - POST PROCEDURAL HAEMORRHAGE [None]
  - RECTAL HAEMORRHAGE [None]
  - SHOCK HAEMORRHAGIC [None]
  - TACHYCARDIA [None]
